FAERS Safety Report 12657524 (Version 1)
Quarter: 2016Q3

REPORT INFORMATION
  Report Type: Spontaneous
  Country: JP (occurrence: JP)
  Receive Date: 20160816
  Receipt Date: 20160816
  Transmission Date: 20161109
  Serious: Yes (Other)
  Sender: FDA-Public Use
  Company Number: JP-009507513-1608JPN006568

PATIENT
  Age: 44 Year
  Sex: Female
  Weight: 48 kg

DRUGS (3)
  1. CUBICIN [Suspect]
     Active Substance: DAPTOMYCIN
     Dosage: DAILY DOSAGE UNKNOWN
     Route: 041
     Dates: start: 2016
  2. RISPERDAL [Concomitant]
     Active Substance: RISPERIDONE
     Dosage: DAILY DOSAGE UNKNOWN
     Route: 065
  3. CUBICIN [Suspect]
     Active Substance: DAPTOMYCIN
     Indication: STAPHYLOCOCCAL ABSCESS
     Dosage: 300 MG, QD
     Route: 041
     Dates: start: 20160513, end: 20160629

REACTIONS (1)
  - Hyperphosphataemia [Recovered/Resolved]

NARRATIVE: CASE EVENT DATE: 2016
